FAERS Safety Report 5751647-1 (Version None)
Quarter: 2008Q2

REPORT INFORMATION
  Report Type: 
  Country: None (occurrence: None)
  Receive Date: 20080528
  Receipt Date: 20080521
  Transmission Date: 20081010
  Serious: Yes (Hospitalization)
  Sender: FDA-Public Use
  Company Number: PHHY2008BR08647

PATIENT

DRUGS (1)
  1. CODATEN [Suspect]

REACTIONS (2)
  - DIARRHOEA [None]
  - PALPITATIONS [None]
